FAERS Safety Report 15749807 (Version 1)
Quarter: 2018Q4

REPORT INFORMATION
  Report Type: Spontaneous
  Country: DE (occurrence: DE)
  Receive Date: 20181221
  Receipt Date: 20181221
  Transmission Date: 20190205
  Serious: Yes (Other)
  Sender: FDA-Public Use
  Company Number: DE-BRISTOL-MYERS SQUIBB COMPANY-BMS-2018-118969

PATIENT
  Age: 86 Year
  Sex: Male
  Weight: 80 kg

DRUGS (2)
  1. PROFACT [Concomitant]
     Active Substance: BUSERELIN ACETATE
     Indication: PRODUCT USED FOR UNKNOWN INDICATION
     Route: 065
  2. ELIQUIS [Suspect]
     Active Substance: APIXABAN
     Indication: CEREBROVASCULAR ACCIDENT PROPHYLAXIS
     Dosage: 10 MG, QD
     Route: 065

REACTIONS (3)
  - Hydronephrosis [Unknown]
  - Urinary bladder haemorrhage [Unknown]
  - Tissue infiltration [Unknown]

NARRATIVE: CASE EVENT DATE: 201812
